FAERS Safety Report 18610967 (Version 1)
Quarter: 2020Q4

REPORT INFORMATION
  Report Type: Spontaneous
  Country: US (occurrence: US)
  Receive Date: 20201212
  Receipt Date: 20201212
  Transmission Date: 20210114
  Serious: Yes (Other)
  Sender: FDA-Public Use
  Company Number: None

PATIENT
  Age: 39 Year
  Sex: Female
  Weight: 72 kg

DRUGS (1)
  1. MIRALAX [Suspect]
     Active Substance: POLYETHYLENE GLYCOL 3350
     Indication: CONSTIPATION
     Route: 048
     Dates: start: 20201204, end: 20201204

REACTIONS (6)
  - Pruritus [None]
  - Back pain [None]
  - Pyrexia [None]
  - Myalgia [None]
  - Vomiting [None]
  - Facial pain [None]

NARRATIVE: CASE EVENT DATE: 20201204
